FAERS Safety Report 4993510-X (Version None)
Quarter: 2006Q2

REPORT INFORMATION
  Report Type: 
  Country: None (occurrence: None)
  Receive Date: 20060505
  Receipt Date: 20060425
  Transmission Date: 20061013
  Serious: Yes (Other)
  Sender: FDA-Public Use
  Company Number: 2006GB00701

PATIENT
  Age: 745 Month
  Sex: Female

DRUGS (1)
  1. ARIMIDEX [Suspect]
     Indication: BREAST CANCER
     Route: 048
     Dates: start: 20031001

REACTIONS (3)
  - DIFFICULTY IN WALKING [None]
  - INSOMNIA [None]
  - PAIN IN EXTREMITY [None]
